FAERS Safety Report 9815018 (Version 1)
Quarter: 2014Q1

REPORT INFORMATION
  Report Type: Spontaneous
  Country: US (occurrence: US)
  Receive Date: 20140114
  Receipt Date: 20140114
  Transmission Date: 20141002
  Serious: Yes (Hospitalization, Other)
  Sender: FDA-Public Use
  Company Number: US-ROCHE-1331524

PATIENT
  Sex: Male

DRUGS (3)
  1. LUCENTIS [Suspect]
     Indication: MACULAR DEGENERATION
     Route: 050
  2. GLIPIZIDE [Concomitant]
  3. LASIX [Concomitant]

REACTIONS (3)
  - Cystitis [Recovered/Resolved]
  - Bladder neoplasm [Recovered/Resolved]
  - Prostatic obstruction [Recovered/Resolved]
